FAERS Safety Report 11044231 (Version 1)
Quarter: 2015Q2

REPORT INFORMATION
  Report Type: Spontaneous
  Country: JP (occurrence: JP)
  Receive Date: 20150417
  Receipt Date: 20150417
  Transmission Date: 20150821
  Serious: Yes (Other)
  Sender: FDA-Public Use
  Company Number: JP-ASTRAZENECA-2015SE34842

PATIENT
  Age: 81 Year
  Sex: Male

DRUGS (6)
  1. FERRUM [Concomitant]
     Active Substance: FERROUS FUMARATE
     Route: 048
     Dates: start: 20150325
  2. PARIET [Suspect]
     Active Substance: RABEPRAZOLE SODIUM
     Indication: GASTRIC ULCER
     Route: 048
     Dates: start: 20110620, end: 20131020
  3. GASTER [Concomitant]
     Active Substance: FAMOTIDINE
     Indication: GASTRIC ULCER
     Route: 048
     Dates: start: 20141218, end: 20150225
  4. NEXIUM [Suspect]
     Active Substance: ESOMEPRAZOLE MAGNESIUM
     Indication: GASTRIC ULCER
     Route: 048
     Dates: start: 20150226
  5. NEXIUM [Suspect]
     Active Substance: ESOMEPRAZOLE MAGNESIUM
     Indication: GASTRIC ULCER
     Route: 048
     Dates: start: 20131021, end: 20141217
  6. MUCOSTA [Concomitant]
     Active Substance: REBAMIPIDE
     Route: 048
     Dates: start: 20140714

REACTIONS (1)
  - Hypergastrinaemia [Not Recovered/Not Resolved]

NARRATIVE: CASE EVENT DATE: 20140714
